FAERS Safety Report 5616401-X (Version None)
Quarter: 2008Q1

REPORT INFORMATION
  Report Type: 
  Country: None (occurrence: None)
  Receive Date: 20080207
  Receipt Date: 20080128
  Transmission Date: 20080703
  Serious: Yes (Hospitalization)
  Sender: FDA-Public Use
  Company Number: US-BAYER-200716571NA

PATIENT
  Age: 17 Year
  Sex: Female
  Weight: 49 kg

DRUGS (3)
  1. MIRENA [Suspect]
     Indication: CONTRACEPTION
     Route: 015
     Dates: start: 20071105, end: 20071206
  2. DEPO-PROVERA [Concomitant]
     Indication: CONTRACEPTION
     Route: 030
     Dates: start: 20070920, end: 20070920
  3. ANTIBIOTICS [Concomitant]
     Indication: PELVIC INFLAMMATORY DISEASE

REACTIONS (1)
  - PELVIC INFLAMMATORY DISEASE [None]
